FAERS Safety Report 19907982 (Version 1)
Quarter: 2021Q3

REPORT INFORMATION
  Report Type: Spontaneous
  Country: CN (occurrence: CN)
  Receive Date: 20210930
  Receipt Date: 20210930
  Transmission Date: 20211014
  Serious: Yes (Hospitalization)
  Sender: FDA-Public Use
  Company Number: CN-BAXTER-2021BAX024727

PATIENT
  Age: 53 Year
  Sex: Male
  Weight: 75 kg

DRUGS (16)
  1. VINDESINE SULFATE [Suspect]
     Active Substance: VINDESINE SULFATE
     Indication: LYMPHOMA
     Dosage: VINDESINE 5 MG + 0.9% NS 40 ML IV QD D2
     Route: 042
     Dates: start: 20180905, end: 20180905
  2. 0.9% SODIUM CHLORIDE INJECTION [Suspect]
     Active Substance: SODIUM CHLORIDE
     Indication: MEDICATION DILUTION
     Dosage: CYCLOPHOSPHAMIDE FOR INJECTION 1.3 G + 0.9% NS 80 ML IV QD D2
     Route: 042
     Dates: start: 20180905, end: 20180905
  3. 0.9% SODIUM CHLORIDE INJECTION [Suspect]
     Active Substance: SODIUM CHLORIDE
     Dosage: RITUXIMAB INJECTION 700 MG + 0.9% NS 700 ML IVGTT QD D1
     Route: 041
     Dates: start: 20180904, end: 20180904
  4. 0.9% SODIUM CHLORIDE INJECTION [Suspect]
     Active Substance: SODIUM CHLORIDE
     Dosage: DOSE REINTRODUCED; DILUTION FOR RITUXIMAB
     Route: 041
  5. VINDESINE SULFATE [Suspect]
     Active Substance: VINDESINE SULFATE
     Dosage: DOSE RE?INTRODUCED
     Route: 042
  6. EPIRUBICIN HYDROCHLORIDE. [Suspect]
     Active Substance: EPIRUBICIN HYDROCHLORIDE
     Dosage: DOSE RE?INTRODUCED
     Route: 042
  7. ENDOXAN [Suspect]
     Active Substance: CYCLOPHOSPHAMIDE
     Indication: LYMPHOMA
     Dosage: CYCLOPHOSPHAMIDE 1.3 G + 0.9% NS 80 ML IV QD D2
     Route: 042
     Dates: start: 20180905, end: 20180905
  8. ENDOXAN [Suspect]
     Active Substance: CYCLOPHOSPHAMIDE
     Dosage: DOSE RE?INTRODUCED
     Route: 042
  9. 0.9% SODIUM CHLORIDE INJECTION [Suspect]
     Active Substance: SODIUM CHLORIDE
     Dosage: VINDESINE  SULFATE FOR INJECTION 5 MG + 0.9% NS 40 ML IV QD D2
     Route: 042
     Dates: start: 20180905, end: 20180905
  10. WATER. [Suspect]
     Active Substance: WATER
     Dosage: DOSE REINTRODUCED; DILUTION FOR EPIRUBICIN HYDROCHLORIDE
     Route: 042
  11. EPIRUBICIN HYDROCHLORIDE. [Suspect]
     Active Substance: EPIRUBICIN HYDROCHLORIDE
     Indication: LYMPHOMA
     Dosage: EPIRUBICIN 60 MG + WATER FOR INJECTION 40 ML IV D2?3
     Route: 042
     Dates: start: 20180905, end: 20180906
  12. MABTHERA [Suspect]
     Active Substance: RITUXIMAB
     Indication: LYMPHOMA
     Dosage: RITUXIMAB 700 MG + 0.9% NS 700 ML IVGTT QD D1
     Route: 041
     Dates: start: 20180904, end: 20180904
  13. WATER. [Suspect]
     Active Substance: WATER
     Indication: MEDICATION DILUTION
     Dosage: EPIRUBICIN HYDROCHLORIDE FOR INJECTION 60 MG + WATER FOR INJECTION 40 ML IV D2?3
     Route: 042
     Dates: start: 20180905, end: 20180906
  14. 0.9% SODIUM CHLORIDE INJECTION [Suspect]
     Active Substance: SODIUM CHLORIDE
     Dosage: DOSE REINTRODUCED; DILUTION FOR CYCLOPHOSPHAMIDE
     Route: 042
  15. 0.9% SODIUM CHLORIDE INJECTION [Suspect]
     Active Substance: SODIUM CHLORIDE
     Dosage: DOSE REINTRODUCED; DILUTION FOR VINDESINE  SULFATE
     Route: 042
  16. MABTHERA [Suspect]
     Active Substance: RITUXIMAB
     Dosage: DOSE RE?INTRODUCED
     Route: 041

REACTIONS (1)
  - Myelosuppression [Recovered/Resolved]

NARRATIVE: CASE EVENT DATE: 20180913
